FAERS Safety Report 9363794 (Version 3)
Quarter: 2013Q3

REPORT INFORMATION
  Report Type: Report from Study
  Country: US (occurrence: US)
  Receive Date: 20130624
  Receipt Date: 20130808
  Transmission Date: 20140515
  Serious: Yes (Other)
  Sender: FDA-Public Use
  Company Number: US-TEVA-414437USA

PATIENT
  Age: 0 Day
  Sex: Male
  Weight: 3.66 kg

DRUGS (1)
  1. NUVIGIL [Suspect]
     Route: 048

REACTIONS (4)
  - Ventricular septal defect [Recovering/Resolving]
  - Cardiac murmur [Not Recovered/Not Resolved]
  - Temperature regulation disorder [Unknown]
  - Atrial septal defect [Recovering/Resolving]
